FAERS Safety Report 20345565 (Version 1)
Quarter: 2022Q1

REPORT INFORMATION
  Report Type: Spontaneous
  Country: US (occurrence: None)
  Receive Date: 20220115
  Receipt Date: 20220115
  Transmission Date: 20220424
  Serious: Yes (Death)
  Sender: FDA-Public Use
  Company Number: None

PATIENT
  Age: 72 Year
  Sex: Female

DRUGS (19)
  1. PROMACTA [Suspect]
     Active Substance: ELTROMBOPAG OLAMINE
     Indication: Immune thrombocytopenia
     Dosage: FREQUENCY : DAILY;?
     Route: 048
     Dates: start: 20210315, end: 20220108
  2. ALVESCO [Concomitant]
     Active Substance: CICLESONIDE
  3. ATENOLOL [Concomitant]
     Active Substance: ATENOLOL
  4. BENZONATATE [Concomitant]
     Active Substance: BENZONATATE
  5. CALCITRIOL [Concomitant]
     Active Substance: CALCITRIOL
  6. CARBIDOPA\LEVODOPA [Concomitant]
     Active Substance: CARBIDOPA\LEVODOPA
  7. CINACALCET [Concomitant]
     Active Substance: CINACALCET
  8. ergocaliferol [Concomitant]
  9. FERROUS SULFATE [Concomitant]
     Active Substance: FERROUS SULFATE
  10. fluocinonide 0.5% cream [Concomitant]
  11. gentamicin 0.1% cream [Concomitant]
  12. KRILL OIL [Concomitant]
     Active Substance: DIETARY SUPPLEMENT\KRILL OIL
  13. LACTULOSE [Concomitant]
     Active Substance: LACTULOSE
  14. LOSARTAN [Concomitant]
     Active Substance: LOSARTAN
  15. MIDODRINE [Concomitant]
     Active Substance: MIDODRINE
  16. ORENCIA [Concomitant]
     Active Substance: ABATACEPT
  17. KLOR-CON [Concomitant]
     Active Substance: POTASSIUM CHLORIDE
  18. PROCRIT [Concomitant]
     Active Substance: ERYTHROPOIETIN
  19. PRAVASTATIN [Concomitant]
     Active Substance: PRAVASTATIN

REACTIONS (7)
  - Abdominal pain lower [None]
  - Small intestinal obstruction [None]
  - Intestinal perforation [None]
  - Peritonitis [None]
  - Peritoneal dialysis [None]
  - Pneumoperitoneum [None]
  - Intestinal dilatation [None]

NARRATIVE: CASE EVENT DATE: 20220109
